FAERS Safety Report 4543662-0 (Version None)
Quarter: 2005Q1

REPORT INFORMATION
  Report Type: 
  Country: None (occurrence: None)
  Receive Date: 20050103
  Receipt Date: 20041216
  Transmission Date: 20050727
  Serious: Yes (Death, Hospitalization)
  Sender: FDA-Public Use
  Company Number: US-BRISTOL-MYERS SQUIBB COMPANY-12798575

PATIENT
  Sex: Male

DRUGS (2)
  1. ERBITUX [Suspect]
     Indication: COLORECTAL CANCER
     Route: 042
     Dates: start: 20040915, end: 20040915
  2. IRINOTECAN [Concomitant]
     Dates: start: 20040907, end: 20040907

REACTIONS (11)
  - COLORECTAL CANCER METASTATIC [None]
  - COMA [None]
  - DEHYDRATION [None]
  - GASTROINTESTINAL OBSTRUCTION [None]
  - GASTROINTESTINAL PERFORATION [None]
  - NAUSEA [None]
  - OBSTRUCTION [None]
  - RASH [None]
  - RASH GENERALISED [None]
  - REFUSAL OF TREATMENT BY PATIENT [None]
  - VOMITING [None]
